FAERS Safety Report 14552246 (Version 4)
Quarter: 2018Q1

REPORT INFORMATION
  Report Type: Report from Study
  Country: CN (occurrence: CN)
  Receive Date: 20180220
  Receipt Date: 20180327
  Transmission Date: 20180509
  Serious: Yes (Hospitalization, Other)
  Sender: FDA-Public Use
  Company Number: PHHY2018CN025037

PATIENT
  Age: 73 Year
  Sex: Female
  Weight: 78 kg

DRUGS (1)
  1. LETROZOLE. [Suspect]
     Active Substance: LETROZOLE
     Indication: BREAST CANCER METASTATIC
     Dosage: 2.5 MG, QD
     Route: 048
     Dates: start: 20170616

REACTIONS (7)
  - Pulmonary fibrosis [Unknown]
  - Lung disorder [Unknown]
  - Blood bicarbonate increased [Unknown]
  - Anion gap decreased [Unknown]
  - Interstitial lung disease [Recovered/Resolved]
  - Traumatic lung injury [Unknown]
  - Hypoxia [Unknown]

NARRATIVE: CASE EVENT DATE: 20180129
